FAERS Safety Report 22614434 (Version 1)
Quarter: 2023Q2

REPORT INFORMATION
  Report Type: Spontaneous
  Country: EU (occurrence: EU)
  Receive Date: 20230619
  Receipt Date: 20230619
  Transmission Date: 20230721
  Serious: Yes (Hospitalization)
  Sender: FDA-Public Use
  Company Number: EU-SAMIL-GLO2023NO003603

PATIENT
  Sex: Female

DRUGS (13)
  1. METHOTREXATE [Suspect]
     Active Substance: METHOTREXATE
     Indication: Gene mutation
     Dosage: 7.5 MG, 1 DOSE WEEKLY
  2. ADALIMUMAB [Suspect]
     Active Substance: ADALIMUMAB
     Indication: Gene mutation
     Dosage: UNK
  3. ANAKINRA [Suspect]
     Active Substance: ANAKINRA
     Indication: Gene mutation
     Dosage: UNK
  4. TOCILIZUMAB [Suspect]
     Active Substance: TOCILIZUMAB
     Indication: Gene mutation
     Dosage: UNK
  5. CYCLOSPORINE [Suspect]
     Active Substance: CYCLOSPORINE
     Indication: Gene mutation
     Dosage: 3 MG/KG
  6. INTERFERON ALFA NOS [Suspect]
     Active Substance: INTERFERON ALFA-2A OR INTERFERON ALFA-2B
     Indication: Gene mutation
     Dosage: UNK
  7. AZATHIOPRINE [Suspect]
     Active Substance: AZATHIOPRINE
     Indication: Gene mutation
     Dosage: 2 MG/KG
  8. AZATHIOPRINE [Suspect]
     Active Substance: AZATHIOPRINE
     Indication: Gene mutation
     Dosage: UNK
  9. COLCHICINE [Suspect]
     Active Substance: COLCHICINE
     Indication: Gene mutation
     Dosage: UNK
  10. MYCOPHENOLATE MOFETIL [Suspect]
     Active Substance: MYCOPHENOLATE MOFETIL
     Indication: Gene mutation
     Dosage: UNK
  11. THALIDOMIDE [Suspect]
     Active Substance: THALIDOMIDE
     Indication: Gene mutation
     Dosage: UNK
  12. INFLIXIMAB [Suspect]
     Active Substance: INFLIXIMAB
     Indication: Gene mutation
     Dosage: 5 MG/KG
  13. PREDNISOLONE [Suspect]
     Active Substance: PREDNISOLONE
     Indication: Gene mutation
     Dosage: UNK

REACTIONS (3)
  - Drug ineffective for unapproved indication [Unknown]
  - Adverse drug reaction [Unknown]
  - Off label use [Unknown]
